FAERS Safety Report 17742395 (Version 1)
Quarter: 2020Q2

REPORT INFORMATION
  Report Type: Spontaneous
  Country: US (occurrence: US)
  Receive Date: 20200505
  Receipt Date: 20200505
  Transmission Date: 20200714
  Serious: Yes (Other)
  Sender: FDA-Public Use
  Company Number: US-GLENMARK PHARMACEUTICALS-2019GMK040984

PATIENT

DRUGS (3)
  1. NAPROXEN TABLETS USP [Suspect]
     Active Substance: NAPROXEN
     Indication: NECK PAIN
  2. NAPROXEN TABLETS USP [Suspect]
     Active Substance: NAPROXEN
     Indication: MUSCULOSKELETAL PAIN
  3. NAPROXEN TABLETS USP [Suspect]
     Active Substance: NAPROXEN
     Indication: ARTHRITIS
     Dosage: 500 MG, BID
     Route: 048
     Dates: start: 201904, end: 20190504

REACTIONS (6)
  - Epigastric discomfort [Recovered/Resolved]
  - Gastrointestinal haemorrhage [Recovered/Resolved]
  - Expired product administered [Unknown]
  - Hypoaesthesia [Recovered/Resolved]
  - Faeces discoloured [Recovered/Resolved]
  - Cyst [Recovered/Resolved]

NARRATIVE: CASE EVENT DATE: 2019
